FAERS Safety Report 16375029 (Version 3)
Quarter: 2019Q3

REPORT INFORMATION
  Report Type: Report from Study
  Country: US (occurrence: US)
  Receive Date: 20190531
  Receipt Date: 20190722
  Transmission Date: 20191004
  Serious: Yes (Hospitalization, Other)
  Sender: FDA-Public Use
  Company Number: US-SHIRE-US201917509

PATIENT
  Sex: Female

DRUGS (2)
  1. HUMAN NORMAL IMMUNOGLOBULIN; LIQUID 20 [Suspect]
     Active Substance: HUMAN IMMUNOGLOBULIN G
     Indication: IMMUNODEFICIENCY
     Route: 065
  2. BENADRYL [Concomitant]
     Active Substance: DIPHENHYDRAMINE HYDROCHLORIDE
     Indication: PRODUCT USED FOR UNKNOWN INDICATION
     Route: 065

REACTIONS (17)
  - Sinusitis [Unknown]
  - Malabsorption from injection site [Unknown]
  - Infusion site mass [Unknown]
  - Infusion site erythema [Unknown]
  - Infusion site discolouration [Unknown]
  - Scar [Unknown]
  - Cystitis [Unknown]
  - Hernia [Unknown]
  - Infection [Unknown]
  - Malaise [Unknown]
  - Lymphadenopathy [Unknown]
  - Respiratory tract infection [Unknown]
  - Oropharyngeal pain [Unknown]
  - Inappropriate schedule of product administration [Unknown]
  - Infusion related reaction [Unknown]
  - Infusion site pain [Unknown]
  - Infusion site warmth [Unknown]
